FAERS Safety Report 23920987 (Version 1)
Quarter: 2024Q2

REPORT INFORMATION
  Report Type: Spontaneous
  Country: US (occurrence: None)
  Receive Date: 20240529
  Receipt Date: 20240529
  Transmission Date: 20240716
  Serious: Yes (Other)
  Sender: FDA-Public Use
  Company Number: None

PATIENT
  Age: 55 Year
  Sex: Female
  Weight: 76.05 kg

DRUGS (13)
  1. TRULICITY [Suspect]
     Active Substance: DULAGLUTIDE
     Indication: Glycosylated haemoglobin increased
     Dosage: OTHER QUANTITY : 1 INJECTION(S);?OTHER FREQUENCY : ONCE PER WEEK;?OTHER ROUTE : INJECTION;?
     Route: 050
     Dates: start: 20240301, end: 20240511
  2. Timilol [Concomitant]
  3. LATANOPROST [Concomitant]
  4. ATENOLOL [Concomitant]
  5. CHLORTHALIDONE [Concomitant]
  6. blood glucose monioring sysem [Concomitant]
  7. chlorhexidone Gluconate [Concomitant]
  8. METFORMIN [Concomitant]
  9. LEVOTHYROXINE SODIUM [Concomitant]
     Active Substance: LEVOTHYROXINE SODIUM
  10. TRIAMCINOLONE ACETONIDE [Concomitant]
     Active Substance: TRIAMCINOLONE ACETONIDE
  11. HYDROXYZINE [Concomitant]
  12. METHYLPREDNISOLONE [Concomitant]
  13. Oliver Leaf Extract [Concomitant]

REACTIONS (2)
  - Rash pruritic [None]
  - Skin discolouration [None]

NARRATIVE: CASE EVENT DATE: 20240412
